FAERS Safety Report 21027407 (Version 1)
Quarter: 2022Q2

REPORT INFORMATION
  Report Type: Spontaneous
  Country: ES (occurrence: ES)
  Receive Date: 20220630
  Receipt Date: 20220630
  Transmission Date: 20220721
  Serious: Yes (Hospitalization)
  Sender: FDA-Public Use
  Company Number: ES-MYLANLABS-2022M1049170

PATIENT
  Age: 29 Year
  Sex: Female

DRUGS (5)
  1. ACETAMINOPHEN [Suspect]
     Active Substance: ACETAMINOPHEN
     Indication: Eye pain
     Dosage: UNK
     Route: 048
  2. ACETAMINOPHEN [Suspect]
     Active Substance: ACETAMINOPHEN
     Indication: Eye pain
     Dosage: UNK
     Route: 042
  3. NAPROXEN [Suspect]
     Active Substance: NAPROXEN
     Indication: Eye pain
     Dosage: UNK
     Route: 065
  4. DICLOFENAC [Suspect]
     Active Substance: DICLOFENAC
     Indication: Eye pain
     Dosage: UNK
     Route: 042
  5. DICLOFENAC [Suspect]
     Active Substance: DICLOFENAC
     Indication: Eye pain
     Dosage: UNK, ON ADMISSION
     Route: 065

REACTIONS (1)
  - Drug ineffective [Unknown]
